FAERS Safety Report 5596782-6 (Version None)
Quarter: 2008Q1

REPORT INFORMATION
  Report Type: 
  Country: None (occurrence: None)
  Receive Date: 20080118
  Receipt Date: 20080108
  Transmission Date: 20080703
  Serious: Yes (Other)
  Sender: FDA-Public Use
  Company Number: GB-PFIZER INC-2008003440

PATIENT
  Age: 67 Year
  Sex: Female

DRUGS (6)
  1. PREGABALIN [Suspect]
     Indication: TRIGEMINAL NEURALGIA
  2. CLOPIDOGREL [Interacting]
     Indication: MYOCARDIAL INFARCTION
  3. ASPIRIN [Interacting]
     Indication: MYOCARDIAL INFARCTION
  4. SIMVASTATIN [Interacting]
     Indication: MYOCARDIAL INFARCTION
  5. RAMIPRIL [Interacting]
     Indication: MYOCARDIAL INFARCTION
  6. CARDICOR [Interacting]
     Indication: MYOCARDIAL INFARCTION

REACTIONS (3)
  - DRUG INEFFECTIVE [None]
  - DRUG INTERACTION [None]
  - MYOCARDIAL INFARCTION [None]
